FAERS Safety Report 20545091 (Version 1)
Quarter: 2022Q1

REPORT INFORMATION
  Report Type: Spontaneous
  Country: US (occurrence: US)
  Receive Date: 20220303
  Receipt Date: 20220303
  Transmission Date: 20220423
  Serious: No
  Sender: FDA-Public Use
  Company Number: US-ALLERGAN-2111466US

PATIENT
  Age: 88 Year
  Sex: Male
  Weight: 81.633 kg

DRUGS (10)
  1. RESTASIS [Suspect]
     Active Substance: CYCLOSPORINE
     Indication: Dry eye
     Dosage: 2 GTT, BID
     Route: 031
     Dates: start: 20210311, end: 20210409
  2. Methylcellulose drops [Concomitant]
     Indication: Dry eye
     Dosage: 1-2 DROPS, 3-4 TIMES A DAY
  3. LOSARTAN [Concomitant]
     Active Substance: LOSARTAN
     Indication: Blood pressure abnormal
     Dosage: 25 MG, QD
  4. PANTOPRAZOLE [Concomitant]
     Active Substance: PANTOPRAZOLE
     Dosage: 40 MG, QD
  5. XARELTO [Concomitant]
     Active Substance: RIVAROXABAN
     Indication: Atrial fibrillation
     Dosage: 15 MG, QD
  6. OMEGA 3 [Concomitant]
     Active Substance: CAPSAICIN
     Indication: Neovascular age-related macular degeneration
     Dosage: 1200 MG, BID
  7. Preservision AERDs 2 [Concomitant]
  8. BISOPROLOL [Concomitant]
     Active Substance: BISOPROLOL
     Indication: Blood pressure abnormal
     Dosage: 2.5 MG, QD
  9. ACETAMINOPHEN [Concomitant]
     Active Substance: ACETAMINOPHEN
     Indication: Arthritis
     Dosage: 1 G, TID
  10. ROSUVASTATIN [Concomitant]
     Active Substance: ROSUVASTATIN
     Indication: Cholesterosis
     Dosage: 10 MG, QD

REACTIONS (4)
  - Eye pain [Not Recovered/Not Resolved]
  - Eye irritation [Unknown]
  - Product delivery mechanism issue [Unknown]
  - Product design issue [Unknown]

NARRATIVE: CASE EVENT DATE: 20210311
